FAERS Safety Report 13962714 (Version 1)
Quarter: 2017Q3

REPORT INFORMATION
  Report Type: Spontaneous
  Country: ES (occurrence: ES)
  Receive Date: 20170913
  Receipt Date: 20170913
  Transmission Date: 20171128
  Serious: No
  Sender: FDA-Public Use
  Company Number: ES-LUPIN PHARMACEUTICALS INC.-2016-05125

PATIENT
  Age: 66 Year
  Sex: Female

DRUGS (2)
  1. NYSTATIN. [Suspect]
     Active Substance: NYSTATIN
     Indication: ORAL CANDIDIASIS
     Dosage: 500000 IU,TID,
     Route: 048
  2. BUDESONIDE. [Concomitant]
     Active Substance: BUDESONIDE
     Indication: COUGH
     Dosage: 400 ?G,BID,
     Route: 055

REACTIONS (1)
  - Dermatitis contact [Recovered/Resolved with Sequelae]
